FAERS Safety Report 5603411-1 (Version None)
Quarter: 2008Q1

REPORT INFORMATION
  Report Type: 
  Country: None (occurrence: None)
  Receive Date: 20080122
  Receipt Date: 20080104
  Transmission Date: 20080703
  Serious: Yes (Hospitalization)
  Sender: FDA-Public Use
  Company Number: DSA_31271_2008

PATIENT
  Sex: Female

DRUGS (4)
  1. TAVOR /00273201/ (TAVOR - LORAZEPAM) 1 MG (NOT SPECIFIED) [Suspect]
     Dosage: (50 MG 1X NOT THE PRESCRIBED AMOUNT. ORAL)
     Route: 048
     Dates: start: 20080104, end: 20080104
  2. BROMAZEPAM (BROMAZEPAM) 6 MG [Suspect]
     Dosage: (120 MG 1X NOT THE PRESCRIBED AMOUNT. ORAL)
     Route: 048
     Dates: start: 20080104, end: 20080104
  3. METOPROLOL SUCCINATE [Suspect]
     Dosage: (4000 MG 1X NOT THE PRESCRIBED AMOUNT. ORAL)
     Route: 048
     Dates: start: 20080104, end: 20080104
  4. ZYPREXA [Suspect]
     Dosage: (50 MG 1 X NOT THE PRESCRIBED AMOUNT, ORAL)
     Route: 048
     Dates: start: 20080104, end: 20080104

REACTIONS (5)
  - BRADYCARDIA [None]
  - COMA [None]
  - INTENTIONAL OVERDOSE [None]
  - RESPIRATORY FAILURE [None]
  - SUICIDE ATTEMPT [None]
